FAERS Safety Report 9469444 (Version 1)
Quarter: 2013Q3

REPORT INFORMATION
  Report Type: Spontaneous
  Country: GB (occurrence: GB)
  Receive Date: 20130822
  Receipt Date: 20130822
  Transmission Date: 20140515
  Serious: Yes (Other)
  Sender: FDA-Public Use
  Company Number: GB-AMGEN-GBRSP2013057705

PATIENT
  Age: 74 Year
  Sex: Female

DRUGS (20)
  1. PROLIA [Suspect]
     Indication: OSTEOPOROSIS
     Dosage: 1 DF, UNK
     Route: 042
  2. ASPIRIN [Concomitant]
     Dosage: 75 MG, QD
  3. ATORVASTATIN [Concomitant]
     Dosage: 40 MG, QID
  4. CARBOCISTEINE [Concomitant]
     Dosage: 750 MG, TID
  5. CO-AMOXICLAV                       /00756801/ [Concomitant]
     Dosage: UNK UNK, TID
  6. DIGOXIN [Concomitant]
     Dosage: 62.5 MUG, QD
  7. FELODIPINE [Concomitant]
     Indication: BLOOD PRESSURE
     Dosage: 5 MG, QD
  8. GLYCERYL TRINITRATE [Concomitant]
     Dosage: 400 MUG, AS NECESSARY
  9. IPRATROPIUM BROMIDE [Concomitant]
     Dosage: 500 MUG, QID
  10. IVABRADINE [Concomitant]
     Indication: ANGINA PECTORIS
     Dosage: 5 MG, BID
  11. LANSOPRAZOLE [Concomitant]
     Dosage: 30 MG, QD
  12. MONOMIL [Concomitant]
     Dosage: 30 MG, QD
  13. PARACETAMOL [Concomitant]
     Dosage: 1000 MG, QID/AS NECESSARY
  14. PREDNISOLONE [Concomitant]
     Dosage: 5 MG, UNK
  15. RAMIPRIL [Concomitant]
     Indication: BLOOD PRESSURE
     Dosage: 10 MG, QD
  16. SALBUTAMOL [Concomitant]
     Dosage: 2.5 MG, UNK
  17. SALMETEROL/FLUTICASONPROPIONAAT [Concomitant]
     Dosage: 1 DF, BID
  18. STRONTIUM RANELATE [Concomitant]
     Dosage: 2 G, QD
  19. SULFASALAZINE [Concomitant]
     Indication: ARTHRITIS
     Dosage: 1000 MG, BID
  20. VENTOLIN                           /00139501/ [Concomitant]
     Dosage: 100 MUG, AS NECESSARY

REACTIONS (2)
  - Wheezing [Recovering/Resolving]
  - Dyspnoea [Recovering/Resolving]
